FAERS Safety Report 4522519-5 (Version None)
Quarter: 2004Q4

REPORT INFORMATION
  Report Type: 
  Country: None (occurrence: None)
  Receive Date: 20041207
  Receipt Date: 20041122
  Transmission Date: 20050328
  Serious: Yes (Disabling)
  Sender: FDA-Public Use
  Company Number: AU-2004-029644

PATIENT
  Age: 53 Year
  Sex: Female

DRUGS (2)
  1. MAGNEVIST [Suspect]
     Indication: NUCLEAR MAGNETIC RESONANCE IMAGING BRAIN
     Dosage: 10 ML, 1 DOSE, INTRAVENOUS
     Route: 042
     Dates: start: 20040701, end: 20040701
  2. MAGNEVIST [Suspect]
     Indication: NUCLEAR MAGNETIC RESONANCE IMAGING BRAIN
     Dosage: 10 ML, 1 DOSE, INTRAVENOUS
     Route: 042
     Dates: start: 20041001, end: 20041001

REACTIONS (5)
  - BLINDNESS TRANSIENT [None]
  - DEMYELINATION [None]
  - HEMIANOPIA HETERONYMOUS [None]
  - SCOTOMA [None]
  - VISUAL PATHWAY DISORDER [None]
